FAERS Safety Report 18578987 (Version 1)
Quarter: 2020Q4

REPORT INFORMATION
  Report Type: Spontaneous
  Country: US (occurrence: US)
  Receive Date: 20201202
  Receipt Date: 20201202
  Transmission Date: 20210114
  Serious: Yes (Disabling)
  Sender: FDA-Public Use
  Company Number: None

PATIENT
  Age: 32 Year
  Sex: Female
  Weight: 63.5 kg

DRUGS (1)
  1. NEXPLANON [Suspect]
     Active Substance: ETONOGESTREL
     Dates: start: 20151007

REACTIONS (8)
  - Implant site pain [None]
  - Neurological complication associated with device [None]
  - Loss of personal independence in daily activities [None]
  - Device dislocation [None]
  - Economic problem [None]
  - Nerve injury [None]
  - Wrong technique in device usage process [None]
  - Implant site hypoaesthesia [None]

NARRATIVE: CASE EVENT DATE: 20201009
